FAERS Safety Report 7615800-4 (Version None)
Quarter: 2011Q3

REPORT INFORMATION
  Report Type: 
  Country: None (occurrence: None)
  Receive Date: 20110711
  Receipt Date: 20110624
  Transmission Date: 20111222
  Serious: Yes (Hospitalization)
  Sender: FDA-Public Use
  Company Number: 2011MA008020

PATIENT
  Age: 52 Year
  Sex: Female

DRUGS (8)
  1. DICLOFENAC SODIUM [Suspect]
     Indication: MUSCULOSKELETAL PAIN
     Dosage: 5; PO
     Route: 048
     Dates: end: 20040101
  2. TMN-1 (NO PREF. NAME) [Suspect]
     Indication: MENOPAUSAL SYMPTOMS
     Dates: end: 20040101
  3. MEFENAMIC (NO PREF. NAME) [Suspect]
     Indication: OROPHARYNGEAL PAIN
     Dates: end: 20040101
  4. CHLORPHENIRAMINE MALEATE [Suspect]
     Indication: OROPHARYNGEAL PAIN
     Dates: end: 20040101
  5. OXETACAINE (OXETACAINE) [Suspect]
     Indication: MUSCULOSKELETAL PAIN
     Dosage: 5;PO
     Route: 047
     Dates: end: 20040101
  6. CHLORZOXAZONE [Suspect]
     Indication: MUSCULOSKELETAL PAIN
     Dosage: 5; PO
     Route: 048
     Dates: end: 20040101
  7. MORINGA OLEIFERA TEA (NO PREF. NAME) [Suspect]
     Dates: end: 20040101
  8. FEVERALL [Suspect]
     Indication: OROPHARYNGEAL PAIN
     Dosage: TID
     Dates: end: 20040101

REACTIONS (5)
  - THROMBOCYTOPENIA [None]
  - PETECHIAE [None]
  - ECCHYMOSIS [None]
  - WHITE BLOOD CELL COUNT DECREASED [None]
  - GINGIVAL BLEEDING [None]
